FAERS Safety Report 10449754 (Version 2)
Quarter: 2014Q3

REPORT INFORMATION
  Report Type: Spontaneous
  Country: US (occurrence: US)
  Receive Date: 20140912
  Receipt Date: 20140912
  Transmission Date: 20150326
  Serious: No
  Sender: FDA-Public Use
  Company Number: US-INCYTE CORPORATION-2014IN001364

PATIENT
  Age: 58 Year
  Sex: Female
  Weight: 42.18 kg

DRUGS (1)
  1. JAKAFI [Suspect]
     Active Substance: RUXOLITINIB
     Indication: MYELOFIBROSIS
     Dosage: 20 MG, BID
     Route: 048
     Dates: start: 20131108

REACTIONS (2)
  - Drug dose omission [Unknown]
  - Petechiae [Unknown]

NARRATIVE: CASE EVENT DATE: 20140513
